FAERS Safety Report 9924770 (Version 1)
Quarter: 2014Q1

REPORT INFORMATION
  Report Type: Spontaneous
  Country: HR (occurrence: HR)
  Receive Date: 20140226
  Receipt Date: 20140226
  Transmission Date: 20141002
  Serious: Yes (Hospitalization, Other)
  Sender: FDA-Public Use
  Company Number: HR-BAYER-2014-025601

PATIENT
  Age: 55 Year
  Sex: Female

DRUGS (2)
  1. ASPIRIN [Suspect]
     Indication: HEADACHE
     Dosage: 300 MG, PRN
     Route: 048
     Dates: start: 20140131, end: 20140201
  2. KETONAL [Suspect]
     Indication: HEADACHE
     Dosage: 50 MG, PRN
     Route: 048
     Dates: start: 20140201

REACTIONS (8)
  - Melaena [Recovering/Resolving]
  - Haematemesis [Recovering/Resolving]
  - Gastric ulcer [Recovering/Resolving]
  - Gastritis erosive [Recovering/Resolving]
  - Anaemia [Recovering/Resolving]
  - Loss of consciousness [Recovering/Resolving]
  - Dizziness [Recovering/Resolving]
  - Asthenia [Recovering/Resolving]
